FAERS Safety Report 5927142-3 (Version None)
Quarter: 2008Q4

REPORT INFORMATION
  Report Type: 
  Country: None (occurrence: None)
  Receive Date: 20081022
  Receipt Date: 20081014
  Transmission Date: 20090506
  Serious: Yes (Hospitalization)
  Sender: FDA-Public Use
  Company Number: US-AMGEN-QUU313358

PATIENT
  Sex: Female

DRUGS (2)
  1. ENBREL [Suspect]
     Indication: PSORIATIC ARTHROPATHY
     Route: 058
     Dates: start: 19981101
  2. METHOTREXATE [Concomitant]
     Route: 048

REACTIONS (4)
  - CAROTID ENDARTERECTOMY [None]
  - DRUG INEFFECTIVE [None]
  - GAIT DISTURBANCE [None]
  - PSORIATIC ARTHROPATHY [None]
